FAERS Safety Report 11004768 (Version 1)
Quarter: 2015Q2

REPORT INFORMATION
  Report Type: Spontaneous
  Country: US (occurrence: US)
  Receive Date: 20150409
  Receipt Date: 20150409
  Transmission Date: 20150821
  Serious: No
  Sender: FDA-Public Use
  Company Number: US-JNJFOC-20150321265

PATIENT
  Sex: Female
  Weight: 46.72 kg

DRUGS (5)
  1. ROBAXIN [Concomitant]
     Active Substance: METHOCARBAMOL
     Indication: MUSCLE SPASMS
     Route: 065
     Dates: start: 2010
  2. DURAGESIC [Suspect]
     Active Substance: FENTANYL
     Indication: EHLERS-DANLOS SYNDROME
     Route: 062
  3. NORCO [Concomitant]
     Active Substance: ACETAMINOPHEN\HYDROCODONE BITARTRATE
     Indication: BREAKTHROUGH PAIN
     Route: 065
     Dates: start: 2009
  4. DURAGESIC [Suspect]
     Active Substance: FENTANYL
     Indication: EHLERS-DANLOS SYNDROME
     Route: 062
     Dates: start: 2011
  5. DURAGESIC [Suspect]
     Active Substance: FENTANYL
     Indication: EHLERS-DANLOS SYNDROME
     Dosage: 100MCG/HR WITH 12.5 MCG/HR
     Route: 062

REACTIONS (7)
  - Product quality issue [Unknown]
  - Wrong technique in drug usage process [Unknown]
  - Blood glucose decreased [Unknown]
  - Ehlers-Danlos syndrome [Unknown]
  - Headache [Unknown]
  - Product adhesion issue [Unknown]
  - Drug ineffective [Unknown]
